APPROVED DRUG PRODUCT: BIMATOPROST
Active Ingredient: BIMATOPROST
Strength: 0.03%
Dosage Form/Route: SOLUTION/DROPS;TOPICAL
Application: A210515 | Product #001 | TE Code: AT
Applicant: ALEMBIC PHARMACEUTICALS LTD
Approved: Jan 21, 2020 | RLD: No | RS: No | Type: RX